FAERS Safety Report 8431547-9 (Version None)
Quarter: 2012Q2

REPORT INFORMATION
  Report Type: 
  Country: None (occurrence: None)
  Receive Date: 20120607
  Receipt Date: 20120607
  Transmission Date: 20120825
  Serious: Yes (Life-Threatening, Hospitalization)
  Sender: FDA-Public Use
  Company Number: None

PATIENT
  Age: 81 Year
  Sex: Female
  Weight: 72.5755 kg

DRUGS (1)
  1. CELEXA [Suspect]
     Indication: MAJOR DEPRESSION
     Dosage: 20MG 1X DAILY ORAL
     Route: 048
     Dates: start: 20111003

REACTIONS (1)
  - SUICIDAL IDEATION [None]
